FAERS Safety Report 18887690 (Version 1)
Quarter: 2021Q1

REPORT INFORMATION
  Report Type: Report from Study
  Country: US (occurrence: US)
  Receive Date: 20210212
  Receipt Date: 20210212
  Transmission Date: 20210420
  Serious: Yes (Hospitalization)
  Sender: FDA-Public Use
  Company Number: US-JNJFOC-A-US2017-157165

PATIENT
  Age: 71 Year
  Sex: Male
  Weight: 97.51 kg

DRUGS (37)
  1. UPTRAVI [Suspect]
     Active Substance: SELEXIPAG
     Dosage: 1600 MCG, BID
     Route: 048
  2. XARELTO [Concomitant]
     Active Substance: RIVAROXABAN
  3. BYSTOLIC [Concomitant]
     Active Substance: NEBIVOLOL HYDROCHLORIDE
  4. DEMADEX [Concomitant]
     Active Substance: TORSEMIDE
  5. OXYGEN. [Concomitant]
     Active Substance: OXYGEN
  6. TEMOVATE [Concomitant]
     Active Substance: CLOBETASOL PROPIONATE
  7. ALLOPURINOL. [Concomitant]
     Active Substance: ALLOPURINOL
  8. COLCHICINE. [Concomitant]
     Active Substance: COLCHICINE
  9. CYCLOSPORINE. [Concomitant]
     Active Substance: CYCLOSPORINE
  10. VITAMIN C [Concomitant]
     Active Substance: ASCORBIC ACID
  11. LUMIGAN [Concomitant]
     Active Substance: BIMATOPROST
  12. FOLIC ACID. [Concomitant]
     Active Substance: FOLIC ACID
  13. CLONIDINE. [Concomitant]
     Active Substance: CLONIDINE
  14. MECLIZINE [Concomitant]
     Active Substance: MECLIZINE HYDROCHLORIDE
  15. TRAMADOL. [Concomitant]
     Active Substance: TRAMADOL
  16. HYDRALAZINE [Concomitant]
     Active Substance: HYDRALAZINE HYDROCHLORIDE
  17. GABAPENTIN. [Concomitant]
     Active Substance: GABAPENTIN
  18. OLOPATADINE. [Concomitant]
     Active Substance: OLOPATADINE
  19. REVATIO [Concomitant]
     Active Substance: SILDENAFIL CITRATE
  20. AMLODIPINE [Concomitant]
     Active Substance: AMLODIPINE BESYLATE
  21. NORCO [Concomitant]
     Active Substance: ACETAMINOPHEN\HYDROCODONE BITARTRATE
  22. OCUVITE [Concomitant]
     Active Substance: VITAMINS
  23. PREDNISONE. [Concomitant]
     Active Substance: PREDNISONE
  24. NORVASC [Concomitant]
     Active Substance: AMLODIPINE BESYLATE
  25. SEVELAMER [Concomitant]
     Active Substance: SEVELAMER
  26. BACTRIM [Concomitant]
     Active Substance: SULFAMETHOXAZOLE\TRIMETHOPRIM
  27. KEFLEX [Concomitant]
     Active Substance: CEPHALEXIN
  28. VOLTAREN [Concomitant]
     Active Substance: DICLOFENAC SODIUM
  29. KLOR?CON [Concomitant]
     Active Substance: POTASSIUM CHLORIDE
  30. REGULAR INSULIN NOVO NORDISK [Concomitant]
     Active Substance: INSULIN HUMAN
  31. VITAMIN B COMPLEX [Concomitant]
     Active Substance: CYANOCOBALAMIN\DEXPANTHENOL\NIACINAMIDE\PYRIDOXINE HYDROCHLORIDE\RIBOFLAVIN 5^-PHOSPHATE SODIUM\THIAMINE HYDROCHLORIDE\VITAMIN B COMPLEX
  32. METOLAZONE. [Concomitant]
     Active Substance: METOLAZONE
  33. UPTRAVI [Suspect]
     Active Substance: SELEXIPAG
     Indication: PULMONARY HYPERTENSION
     Dosage: 200 MCG, BID
     Route: 048
     Dates: start: 20170629
  34. METHOTREXATE. [Concomitant]
     Active Substance: METHOTREXATE
  35. PROSCAR [Concomitant]
     Active Substance: FINASTERIDE
  36. LOVAZA [Concomitant]
     Active Substance: OMEGA-3-ACID ETHYL ESTERS
  37. COLECALCIFEROL [Concomitant]
     Active Substance: CHOLECALCIFEROL

REACTIONS (21)
  - Weight increased [Recovered/Resolved with Sequelae]
  - Erythema [Unknown]
  - Pain in extremity [Unknown]
  - Abdominal distension [Recovered/Resolved with Sequelae]
  - Nausea [Recovered/Resolved with Sequelae]
  - Urine output decreased [Recovered/Resolved with Sequelae]
  - Condition aggravated [Unknown]
  - Infection [Unknown]
  - Chronic left ventricular failure [Recovered/Resolved with Sequelae]
  - Dyspnoea [Unknown]
  - Catheterisation cardiac [Unknown]
  - Blister infected [Unknown]
  - Pyrexia [Unknown]
  - Cellulitis [Not Recovered/Not Resolved]
  - Swelling [Unknown]
  - Acute kidney injury [Recovered/Resolved with Sequelae]
  - Restless legs syndrome [Unknown]
  - Blood creatinine increased [Recovered/Resolved with Sequelae]
  - Sepsis [Unknown]
  - N-terminal prohormone brain natriuretic peptide increased [Recovered/Resolved with Sequelae]
  - Full blood count abnormal [Unknown]

NARRATIVE: CASE EVENT DATE: 20170701
